FAERS Safety Report 25946561 (Version 1)
Quarter: 2025Q4

REPORT INFORMATION
  Report Type: Spontaneous
  Country: US (occurrence: US)
  Receive Date: 20251022
  Receipt Date: 20251022
  Transmission Date: 20260118
  Serious: No
  Sender: PACIRA
  Company Number: US-ORG100016242-2025000232

PATIENT
  Age: 65 Year
  Sex: Female
  Weight: 51.71 kg

DRUGS (10)
  1. ZILRETTA [Suspect]
     Active Substance: TRIAMCINOLONE ACETONIDE
     Indication: Arthralgia
     Dosage: BOTH KNEES
     Route: 050
     Dates: start: 20240912, end: 20240912
  2. ZILRETTA [Suspect]
     Active Substance: TRIAMCINOLONE ACETONIDE
     Indication: Arthralgia
     Dosage: BOTH KNEES
     Route: 050
     Dates: start: 20241219, end: 20241219
  3. ACETAMINOPHEN [Concomitant]
     Active Substance: ACETAMINOPHEN
     Indication: Product used for unknown indication
     Dosage: 2 TABLETS IN THE MORNING AND AT BEDTIME
     Route: 048
  4. CETIRIZINE [Concomitant]
     Active Substance: CETIRIZINE HYDROCHLORIDE
     Indication: Product used for unknown indication
     Route: 065
  5. CITALOPRAM [Concomitant]
     Active Substance: CITALOPRAM
     Indication: Product used for unknown indication
     Route: 048
  6. DIPHENHYDRAMINE [Concomitant]
     Active Substance: DIPHENHYDRAMINE
     Indication: Product used for unknown indication
     Dosage: ONE AT BEDTIME
     Route: 048
  7. ESTRADIOL [Concomitant]
     Active Substance: ESTRADIOL
     Indication: Product used for unknown indication
     Dosage: TWICE A WEEK (MONDAYS AND THURSDAYS)
     Route: 062
  8. ETODOLAC [Concomitant]
     Active Substance: ETODOLAC
     Indication: Product used for unknown indication
     Dosage: 1 TABLET TWICE DAILY WITH FOOD
     Route: 048
  9. Lidocaine External Patch 5 % [Concomitant]
     Indication: Product used for unknown indication
     Dosage: ONE PATCH EVERY 24 HOURS
     Route: 003
  10. Collagen Plus [Concomitant]
     Indication: Product used for unknown indication
     Dosage: NOT PROVIDED
     Route: 065

REACTIONS (2)
  - Disease progression [Unknown]
  - Alopecia [Unknown]
